FAERS Safety Report 9818196 (Version 1)
Quarter: 2014Q1

REPORT INFORMATION
  Report Type: Report from Study
  Country: FR (occurrence: FR)
  Receive Date: 20140115
  Receipt Date: 20140115
  Transmission Date: 20141002
  Serious: Yes (Hospitalization)
  Sender: FDA-Public Use
  Company Number: FR-ASTELLAS-2014EU000144

PATIENT
  Age: 53 Year
  Sex: Male

DRUGS (7)
  1. ADVAGRAF [Suspect]
     Indication: RENAL TRANSPLANT
     Dosage: UNK
     Route: 065
     Dates: start: 20130807
  2. OMEPRAZOLE [Concomitant]
     Dosage: UNK
     Route: 065
     Dates: start: 20130627
  3. CELLCEPT                           /01275102/ [Concomitant]
     Dosage: UNK
     Route: 065
     Dates: start: 20130628
  4. CORTANCYL [Concomitant]
     Dosage: UNK
     Route: 065
     Dates: start: 20130628, end: 20131001
  5. ARANESP [Concomitant]
     Dosage: UNK
     Route: 065
     Dates: start: 20130630
  6. MECIR [Concomitant]
     Dosage: UNK
     Route: 065
     Dates: start: 20130809
  7. AMLOR [Concomitant]
     Dosage: UNK
     Route: 065
     Dates: start: 20130907

REACTIONS (1)
  - Nephrostomy tube removal [Recovered/Resolved]
